FAERS Safety Report 8782312 (Version 4)
Quarter: 2013Q1

REPORT INFORMATION
  Report Type: Spontaneous
  Country: US (occurrence: US)
  Receive Date: 20120913
  Receipt Date: 20130213
  Transmission Date: 20140127
  Serious: Yes (Other)
  Sender: FDA-Public Use
  Company Number: US-GILEAD-2012-0060953

PATIENT
  Sex: Female

DRUGS (3)
  1. LETAIRIS [Suspect]
     Indication: COR PULMONALE CHRONIC
     Dosage: 5 MG, UNK
     Route: 048
     Dates: start: 20120823
  2. LETAIRIS [Suspect]
     Indication: PULMONARY HYPERTENSION
  3. LETAIRIS [Suspect]
     Indication: MITRAL VALVE INCOMPETENCE

REACTIONS (3)
  - Heart valve incompetence [Unknown]
  - Cardiac operation [Unknown]
  - Skin ulcer [Unknown]
